FAERS Safety Report 9177771 (Version 1)
Quarter: 2013Q1

REPORT INFORMATION
  Report Type: Spontaneous
  Country: US (occurrence: US)
  Receive Date: 20130321
  Receipt Date: 20130321
  Transmission Date: 20140127
  Serious: No
  Sender: FDA-Public Use
  Company Number: US-ASTRAZENECA-2013SE13180

PATIENT
  Age: 3 Year
  Sex: Male

DRUGS (1)
  1. SYMBICORT [Suspect]
     Dosage: 80/4.5 UNKNOWN
     Route: 055
     Dates: start: 2013

REACTIONS (3)
  - Polydipsia [Unknown]
  - Polyuria [Unknown]
  - Off label use [Unknown]
